FAERS Safety Report 25518467 (Version 1)
Quarter: 2025Q3

REPORT INFORMATION
  Report Type: Spontaneous
  Country: US (occurrence: US)
  Receive Date: 20250704
  Receipt Date: 20250704
  Transmission Date: 20251021
  Serious: Yes (Life-Threatening, Hospitalization, Other)
  Sender: PROCTER AND GAMBLE
  Company Number: US-MLMSERVICE-20250620-PI549002-00029-1

PATIENT
  Age: 39 Year
  Sex: Female

DRUGS (1)
  1. ACETAMINOPHEN [Suspect]
     Active Substance: ACETAMINOPHEN
     Route: 048

REACTIONS (10)
  - Overdose [Unknown]
  - Mental status changes [Recovering/Resolving]
  - Encephalopathy [Recovering/Resolving]
  - Bradycardia [Recovering/Resolving]
  - Agitation [Recovering/Resolving]
  - Torsade de pointes [Recovered/Resolved]
  - Sinus bradycardia [Recovered/Resolved]
  - Pulse absent [Recovered/Resolved]
  - Electrocardiogram QT prolonged [Unknown]
  - Blood potassium decreased [Unknown]
